FAERS Safety Report 11568571 (Version 1)
Quarter: 2015Q3

REPORT INFORMATION
  Report Type: Spontaneous
  Country: US (occurrence: None)
  Receive Date: 20150928
  Receipt Date: 20150928
  Transmission Date: 20151125
  Serious: No
  Sender: FDA-Public Use
  Company Number: None

PATIENT
  Age: 59 Year
  Sex: Male

DRUGS (5)
  1. LEVOTHYROXIN [Concomitant]
     Active Substance: LEVOTHYROXINE
  2. CEPHALEXIN. [Concomitant]
     Active Substance: CEPHALEXIN
  3. FENOFIBRATE. [Concomitant]
     Active Substance: FENOFIBRATE
  4. MUPIROCIN. [Concomitant]
     Active Substance: MUPIROCIN
  5. TARGRETIN [Suspect]
     Active Substance: BEXAROTENE
     Indication: NEOPLASM
     Route: 048
     Dates: start: 201408

REACTIONS (1)
  - Disease progression [None]
